FAERS Safety Report 6614295-7 (Version None)
Quarter: 2010Q1

REPORT INFORMATION
  Report Type: 
  Country: None (occurrence: None)
  Receive Date: 20100303
  Receipt Date: 20100303
  Transmission Date: 20100710
  Serious: No
  Sender: FDA-Public Use
  Company Number: None

PATIENT
  Age: 48 Year
  Sex: Female
  Weight: 48.5349 kg

DRUGS (1)
  1. LEVAQUIN [Suspect]
     Indication: SINUSITIS
     Dosage: 1 TABLET DAILY PO
     Route: 048
     Dates: start: 20100218, end: 20100224

REACTIONS (10)
  - ARTHRALGIA [None]
  - ARTHROPOD BITE [None]
  - IMPAIRED WORK ABILITY [None]
  - LIP SWELLING [None]
  - OEDEMA PERIPHERAL [None]
  - PHOTOSENSITIVITY REACTION [None]
  - PRURITUS [None]
  - SUNBURN [None]
  - TENDONITIS [None]
  - URTICARIA [None]
